FAERS Safety Report 6128622-0 (Version None)
Quarter: 2009Q1

REPORT INFORMATION
  Report Type: 
  Country: None (occurrence: None)
  Receive Date: 20090323
  Receipt Date: 20090311
  Transmission Date: 20090719
  Serious: Yes (Other)
  Sender: FDA-Public Use
  Company Number: DE-B.I. PHARMACEUTICALS,INC./RIDGEFIELD-2009-DE-02220DE

PATIENT
  Sex: Male

DRUGS (4)
  1. SIFROL [Suspect]
     Dosage: .36MG
     Route: 048
  2. SIFROL [Suspect]
     Dosage: .7MG
     Route: 048
  3. BROMAZANIL [Suspect]
     Dosage: 3MG
     Route: 048
  4. TARGIN [Suspect]
     Dosage: 2ANZ
     Route: 048

REACTIONS (3)
  - ACCIDENTAL OVERDOSE [None]
  - MEDICATION ERROR [None]
  - SOMNOLENCE [None]
